FAERS Safety Report 8420650-5 (Version None)
Quarter: 2012Q2

REPORT INFORMATION
  Report Type: 
  Country: None (occurrence: None)
  Receive Date: 20120608
  Receipt Date: 20120530
  Transmission Date: 20120825
  Serious: No
  Sender: FDA-Public Use
  Company Number: US-BIOGENIDEC-2012BI019544

PATIENT
  Sex: Male

DRUGS (3)
  1. METFORMIN HCL [Concomitant]
     Indication: DIABETES MELLITUS
  2. TYSABRI [Suspect]
     Indication: MULTIPLE SCLEROSIS
     Route: 042
     Dates: start: 20070809, end: 20120203
  3. ACTOS [Concomitant]
     Indication: DIABETES MELLITUS

REACTIONS (4)
  - LIVER DISORDER [None]
  - PAIN IN EXTREMITY [None]
  - DIABETES MELLITUS [None]
  - BALANCE DISORDER [None]
